FAERS Safety Report 10404403 (Version 3)
Quarter: 2014Q3

REPORT INFORMATION
  Report Type: Report from Study
  Country: FR (occurrence: FR)
  Receive Date: 20140823
  Receipt Date: 20140912
  Transmission Date: 20150326
  Serious: Yes (Death, Hospitalization, Other)
  Sender: FDA-Public Use
  Company Number: PHHY2014FR104004

PATIENT
  Age: 64 Year
  Sex: Female
  Weight: 55 kg

DRUGS (17)
  1. RIVOTRIL [Concomitant]
     Active Substance: CLONAZEPAM
     Dosage: UNK UKN, UNK
     Dates: start: 20140805, end: 20140813
  2. MIDAZOLAM [Concomitant]
     Active Substance: MIDAZOLAM\MIDAZOLAM HYDROCHLORIDE
     Dosage: UNK UKN, UNK
     Dates: start: 20140805
  3. SPASFON [Concomitant]
     Active Substance: PHLOROGLUCINOL
     Dosage: UNK UKN, UNK
  4. DROLEPTAN [Concomitant]
     Active Substance: DROPERIDOL
     Dosage: UNK UKN, UNK
     Dates: start: 20140811
  5. SCOPOLAMINE [Concomitant]
     Active Substance: SCOPOLAMINE
     Dosage: UNK UKN, UNK
     Dates: start: 20140805
  6. NOVORAPID [Concomitant]
     Active Substance: INSULIN ASPART
     Dosage: UNK UKN, UNK
  7. LANTUS [Concomitant]
     Active Substance: INSULIN GLARGINE
     Dosage: UNK UKN, UNK
  8. PANTOPRAZOLE [Concomitant]
     Active Substance: PANTOPRAZOLE SODIUM
     Dosage: UNK UKN, UNK
  9. ALPRAZOLAM. [Concomitant]
     Active Substance: ALPRAZOLAM
     Indication: ANXIETY
     Dosage: 0.25 MG, DAILY
     Dates: start: 20140805
  10. OXAZEPAM. [Concomitant]
     Active Substance: OXAZEPAM
     Indication: INSOMNIA
     Dosage: 10 MG, DAILY
     Dates: start: 20140805
  11. LDK378 [Suspect]
     Active Substance: CERITINIB
     Indication: LUNG ADENOCARCINOMA
     Dosage: 750 MG, DAILY
     Dates: start: 20140221, end: 20140808
  12. OXYNORM [Concomitant]
     Active Substance: OXYCODONE HYDROCHLORIDE
     Dosage: UNK UKN, UNK
  13. MICROLAX                           /03136201/ [Concomitant]
     Dosage: UNK UKN, UNK
  14. KABIVEN                            /06031601/ [Concomitant]
     Indication: NUTRITIONAL SUPPLEMENTATION
     Dosage: UNK UKN, UNK
     Route: 042
     Dates: start: 20140804
  15. KEPPRA [Interacting]
     Active Substance: LEVETIRACETAM
     Indication: CONVULSION
     Dosage: 250 MG, BID
     Route: 048
     Dates: start: 20140805, end: 20140808
  16. KEPPRA [Interacting]
     Active Substance: LEVETIRACETAM
     Indication: EPILEPSY
  17. METHYLPREDNISOLONE [Concomitant]
     Active Substance: METHYLPREDNISOLONE
     Dosage: UNK UKN, UNK

REACTIONS (7)
  - Renal failure [Fatal]
  - Hepatocellular injury [Fatal]
  - Hyperglycaemia [Unknown]
  - Drug interaction [Unknown]
  - General physical health deterioration [Fatal]
  - Thrombocytopenia [Unknown]
  - Coma [Fatal]

NARRATIVE: CASE EVENT DATE: 201408
